FAERS Safety Report 7365454-X (Version None)
Quarter: 2011Q1

REPORT INFORMATION
  Report Type: 
  Country: None (occurrence: None)
  Receive Date: 20110302
  Receipt Date: 20110302
  Transmission Date: 20110831
  Serious: Yes (Hospitalization)
  Sender: FDA-Public Use
  Company Number: None

PATIENT
  Age: 66 Year
  Sex: Male
  Weight: 91.3 kg

DRUGS (16)
  1. MIRALAX [Concomitant]
  2. ACTOS [Concomitant]
  3. LORATADINE [Concomitant]
  4. ZOCOR [Concomitant]
  5. VORICONIZOLE [Concomitant]
  6. VERAPAMIL [Concomitant]
  7. PRILOSEC [Concomitant]
  8. DECITABINE 0.2MG / KG SUB-Q INJECTION 2X PER WEEK [Suspect]
     Indication: MYELODYSPLASTIC SYNDROME
     Dosage: .2MG/KG SUB-Q 2X/WK 0.15MG/KG SUBQ 1X/WK
     Route: 058
     Dates: start: 20110117
  9. DECITABINE 0.2MG / KG SUB-Q INJECTION 2X PER WEEK [Suspect]
     Indication: CHRONIC MYELOMONOCYTIC LEUKAEMIA
     Dosage: .2MG/KG SUB-Q 2X/WK 0.15MG/KG SUBQ 1X/WK
     Route: 058
     Dates: start: 20110117
  10. ACYCLOVIR [Concomitant]
  11. CIPRO [Concomitant]
  12. SENNA [Concomitant]
  13. COLACE [Concomitant]
  14. MULTIVIT [Concomitant]
  15. ALLOPURINOL [Concomitant]
  16. AMARYL [Concomitant]

REACTIONS (4)
  - FEBRILE NEUTROPENIA [None]
  - HAEMOGLOBIN DECREASED [None]
  - PLATELET COUNT DECREASED [None]
  - HEADACHE [None]
